FAERS Safety Report 9785645 (Version 2)
Quarter: 2013Q4

REPORT INFORMATION
  Report Type: Spontaneous
  Country: JP (occurrence: JP)
  Receive Date: 20131227
  Receipt Date: 20131227
  Transmission Date: 20140711
  Serious: Yes (Other)
  Sender: FDA-Public Use
  Company Number: JP-PFIZER INC-2013339260

PATIENT
  Age: 79 Year
  Sex: Male

DRUGS (11)
  1. LYRICA [Suspect]
     Indication: NEURALGIA
     Dosage: 100 MG, DAILY
     Route: 048
  2. METHYCOBAL [Concomitant]
     Dosage: UNK
  3. BAYASPIRIN [Concomitant]
     Dosage: UNK
  4. NEXIUM [Concomitant]
     Dosage: UNK
  5. PURSENNID [Concomitant]
     Dosage: UNK
  6. CRESTOR [Concomitant]
     Dosage: UNK
  7. DEPAS [Concomitant]
     Dosage: UNK
  8. ESTAZOLAM [Concomitant]
     Dosage: UNK
  9. PLAVIX [Concomitant]
     Dosage: UNK
  10. NICORANDIL [Concomitant]
     Dosage: UNK
  11. SIGMART [Concomitant]
     Dosage: UNK

REACTIONS (3)
  - Visual acuity reduced [Unknown]
  - Cataract [Unknown]
  - Impaired driving ability [Unknown]
